FAERS Safety Report 7888485-X (Version None)
Quarter: 2011Q4

REPORT INFORMATION
  Report Type: 
  Country: None (occurrence: None)
  Receive Date: 20111103
  Receipt Date: 20111031
  Transmission Date: 20120403
  Serious: Yes (Death)
  Sender: FDA-Public Use
  Company Number: PHHY2011CA95400

PATIENT
  Sex: Male

DRUGS (17)
  1. CLOZARIL [Suspect]
     Dosage: 300 MG, BID
  2. PROPRANOLOL [Concomitant]
     Dosage: 10 MG, (1 TABLET IN THE MORNING AND 2 TABS AT BEDTIME)
     Dates: start: 20110906
  3. VITAMIN D [Concomitant]
     Dosage: 1000 IU, BID
     Dates: start: 20110906
  4. BISACODYL [Concomitant]
     Dosage: INSERT 1 SUPPOSITORY RECTALLY EVERY 3 DAYS
     Dates: start: 20110712
  5. CLOZARIL [Suspect]
     Dosage: 50 MG, BID
  6. EFFEXOR [Concomitant]
  7. RISPERIDONE [Concomitant]
     Dosage: 2 MG, BID
     Dates: start: 20110906
  8. TOPIRAMATE [Concomitant]
     Dosage: 125 MG, BID
     Dates: start: 20110906
  9. NIACIN [Concomitant]
  10. VITAMIN E [Concomitant]
  11. ACETAMINOPHEN [Concomitant]
     Dates: start: 20110309
  12. CLOZARIL [Suspect]
     Indication: SCHIZOPHRENIA
     Dosage: 350 MG, UNK
     Route: 048
     Dates: start: 19990705, end: 20111028
  13. OXYBUTYNIN [Concomitant]
  14. ASCORBIC ACID [Concomitant]
  15. VENLAFAXINE [Concomitant]
     Dosage: 150 MG, DAILY
  16. MAGNESIUM [Concomitant]
     Dosage: 45 ML, BEDTIME
     Dates: start: 20110906
  17. LACTULOSE [Concomitant]
     Indication: CONSTIPATION
     Dosage: 30 ML, BID
     Dates: start: 20110309

REACTIONS (1)
  - DEATH [None]
